FAERS Safety Report 4382588-2 (Version None)
Quarter: 2004Q2

REPORT INFORMATION
  Report Type: 
  Country: None (occurrence: None)
  Receive Date: 20040622
  Receipt Date: 20040611
  Transmission Date: 20050107
  Serious: Yes (Other)
  Sender: FDA-Public Use
  Company Number: US-MERCK-0406USA01886

PATIENT
  Sex: Female

DRUGS (1)
  1. MEVACOR [Suspect]
     Route: 048
     Dates: start: 20020701

REACTIONS (1)
  - CORONARY ARTERY DISEASE [None]
